FAERS Safety Report 9780917 (Version 1)
Quarter: 2013Q4

REPORT INFORMATION
  Report Type: Spontaneous
  Country: GB (occurrence: None)
  Receive Date: 20131220
  Receipt Date: 20131220
  Transmission Date: 20140711
  Serious: Yes (Other)
  Sender: FDA-Public Use
  Company Number: AUR-APL-2013-10436

PATIENT
  Age: 56 Year
  Sex: Female

DRUGS (3)
  1. AMLODIPINE (AMLODIPINE) [Suspect]
     Indication: HYPERTENSION
     Route: 048
     Dates: start: 20131110, end: 20131124
  2. BENDROFGLUMETHIAZIDE [Concomitant]
  3. LOSARTAN (LOSARTAN) [Concomitant]

REACTIONS (3)
  - Back pain [None]
  - Arthralgia [None]
  - Abasia [None]
